FAERS Safety Report 23854293 (Version 1)
Quarter: 2024Q2

REPORT INFORMATION
  Report Type: Spontaneous
  Country: CN (occurrence: CN)
  Receive Date: 20240514
  Receipt Date: 20240514
  Transmission Date: 20240716
  Serious: Yes (Other)
  Sender: FDA-Public Use
  Company Number: CN-009507513-2405CHN003539

PATIENT
  Age: 66 Year
  Sex: Male
  Weight: 75 kg

DRUGS (2)
  1. INVANZ [Suspect]
     Active Substance: ERTAPENEM SODIUM
     Indication: Pneumonia staphylococcal
     Dosage: 1 G, QD
     Route: 041
     Dates: start: 20240112, end: 20240116
  2. LINEZOLID [Concomitant]
     Active Substance: LINEZOLID
     Dosage: 0.6 GRAM, Q12H

REACTIONS (2)
  - Altered state of consciousness [Recovering/Resolving]
  - Disorganised speech [Unknown]

NARRATIVE: CASE EVENT DATE: 20240116
